FAERS Safety Report 9189791 (Version 1)
Quarter: 2013Q1

REPORT INFORMATION
  Report Type: Spontaneous
  Country: IT (occurrence: None)
  Receive Date: 20130322
  Receipt Date: 20130322
  Transmission Date: 20140127
  Serious: Yes (Other)
  Sender: FDA-Public Use
  Company Number: GER/ITL/13/0028528

PATIENT
  Age: 74 Year
  Sex: Male

DRUGS (6)
  1. CARVEDILOL (CARVEDILOL) [Suspect]
     Indication: CARDIAC FAILURE
     Route: 048
     Dates: start: 20120918, end: 201211
  2. TRIATEC (PANADEINE CO) [Concomitant]
  3. LASIX (FUROSEMIDE) [Concomitant]
  4. ALDACTONE (SPIRONOLACTONE) [Concomitant]
  5. SIVASTIN (SIMVASTATIN) [Concomitant]
  6. COUMADIN (WARFARIN SODIUM) [Concomitant]

REACTIONS (1)
  - Bronchostenosis [None]
